FAERS Safety Report 8815134 (Version 1)
Quarter: 2012Q4

REPORT INFORMATION
  Report Type: Report from Study
  Country: US (occurrence: US)
  Receive Date: 20120928
  Receipt Date: 20120928
  Transmission Date: 20130627
  Serious: Yes (Other)
  Sender: FDA-Public Use
  Company Number: US-JNJFOC-20120909329

PATIENT
  Sex: Male
  Weight: 100.7 kg

DRUGS (10)
  1. REMICADE [Suspect]
     Indication: ANKYLOSING SPONDYLITIS
     Route: 042
     Dates: start: 2012
  2. REMICADE [Suspect]
     Indication: ANKYLOSING SPONDYLITIS
     Dosage: 6 vials
     Route: 042
     Dates: start: 2011
  3. BENAZEPRIL [Concomitant]
     Indication: HYPERTENSION
     Route: 065
  4. METHOTREXATE [Concomitant]
     Route: 065
  5. FOLIC ACID [Concomitant]
     Route: 065
  6. HYDROCODONE [Concomitant]
     Indication: PAIN
     Route: 065
  7. VITAMINS NOS [Concomitant]
     Route: 065
  8. UNSPECIFIED ANTACID [Concomitant]
     Indication: ANTACID THERAPY
     Route: 065
  9. SIMVASTATIN [Concomitant]
     Indication: BLOOD CHOLESTEROL
     Route: 065
  10. FISH OIL [Concomitant]
     Route: 065

REACTIONS (6)
  - Sciatica [Not Recovered/Not Resolved]
  - Drug ineffective [Not Recovered/Not Resolved]
  - Pain [Not Recovered/Not Resolved]
  - Adverse drug reaction [Recovered/Resolved]
  - Flushing [Recovered/Resolved]
  - Pruritus [Recovered/Resolved]
